FAERS Safety Report 18241161 (Version 2)
Quarter: 2020Q3

REPORT INFORMATION
  Report Type: Report from Study
  Country: EG (occurrence: EG)
  Receive Date: 20200908
  Receipt Date: 20200914
  Transmission Date: 20201103
  Serious: Yes (Other)
  Sender: FDA-Public Use
  Company Number: NVSC2020EG242422

PATIENT
  Age: 29 Year
  Sex: Male

DRUGS (1)
  1. GLIVEC [Suspect]
     Active Substance: IMATINIB MESYLATE
     Indication: CHRONIC MYELOID LEUKAEMIA
     Dosage: 400 MG, QD
     Route: 065
     Dates: start: 20190402, end: 202001

REACTIONS (6)
  - Nausea [Recovered/Resolved]
  - Oral herpes [Recovering/Resolving]
  - Dysphagia [Recovering/Resolving]
  - Drug ineffective [Unknown]
  - Feeding disorder [Recovering/Resolving]
  - Abdominal pain [Recovered/Resolved]

NARRATIVE: CASE EVENT DATE: 201904
